FAERS Safety Report 10794322 (Version 1)
Quarter: 2015Q1

REPORT INFORMATION
  Report Type: Report from Study
  Country: TW (occurrence: TW)
  Receive Date: 20150213
  Receipt Date: 20150213
  Transmission Date: 20150721
  Serious: Yes (Other)
  Sender: FDA-Public Use
  Company Number: TW-TAKEDA-2015MPI000564

PATIENT
  Age: 65 Year
  Sex: Female

DRUGS (3)
  1. VELCADE [Suspect]
     Active Substance: BORTEZOMIB
     Dosage: 1.8 MG/M2, UNK
     Route: 065
     Dates: start: 20110813
  2. VELCADE [Suspect]
     Active Substance: BORTEZOMIB
     Dosage: 1.3 MG/M2, UNK
     Route: 065
     Dates: start: 20120216
  3. VELCADE [Suspect]
     Active Substance: BORTEZOMIB
     Indication: PLASMA CELL MYELOMA
     Dosage: 1.3 MG/M2, UNK
     Route: 065
     Dates: start: 20110704

REACTIONS (25)
  - Metastases to central nervous system [Recovered/Resolved]
  - Urinary retention [Not Recovered/Not Resolved]
  - Depression [Not Recovered/Not Resolved]
  - Cough [Recovered/Resolved]
  - Headache [Not Recovered/Not Resolved]
  - Oedema peripheral [Recovered/Resolved]
  - Oropharyngeal pain [Not Recovered/Not Resolved]
  - Pyrexia [Recovered/Resolved]
  - Upper gastrointestinal haemorrhage [Not Recovered/Not Resolved]
  - Sinusitis fungal [Not Recovered/Not Resolved]
  - Periodontitis [Recovered/Resolved]
  - Dizziness [Recovered/Resolved]
  - Dental caries [Recovered/Resolved]
  - Vertigo [Recovered/Resolved]
  - Sepsis [Recovered/Resolved]
  - Toothache [Not Recovered/Not Resolved]
  - Debridement [Recovered/Resolved]
  - Tumour excision [Recovered/Resolved]
  - Insomnia [Not Recovered/Not Resolved]
  - Herpes virus infection [Recovered/Resolved]
  - Cellulitis [Recovered/Resolved]
  - Alveolar osteitis [Recovered/Resolved]
  - Central venous catheterisation [Recovered/Resolved]
  - Tooth extraction [Recovered/Resolved]
  - Hypertension [Recovered/Resolved]

NARRATIVE: CASE EVENT DATE: 20110725
